FAERS Safety Report 9887145 (Version 1)
Quarter: 2014Q1

REPORT INFORMATION
  Report Type: Spontaneous
  Country: US (occurrence: US)
  Receive Date: 20140211
  Receipt Date: 20140211
  Transmission Date: 20141002
  Serious: Yes (Hospitalization)
  Sender: FDA-Public Use
  Company Number: US-BIOGENIDEC-2014BI012047

PATIENT
  Age: 55 Year
  Sex: Female

DRUGS (6)
  1. TECFIDERA [Suspect]
     Indication: MULTIPLE SCLEROSIS
     Route: 048
  2. AMPYRA [Concomitant]
  3. ATIVAN [Concomitant]
  4. BONIVA [Concomitant]
  5. HYDROCODONE-ACETAMINOPHEN [Concomitant]
  6. PROVIGIL [Concomitant]

REACTIONS (2)
  - Knee operation [Unknown]
  - Flushing [Unknown]
